FAERS Safety Report 6674304-6 (Version None)
Quarter: 2010Q2

REPORT INFORMATION
  Report Type: 
  Country: None (occurrence: None)
  Receive Date: 20100409
  Receipt Date: 20100331
  Transmission Date: 20101027
  Serious: Yes (Other)
  Sender: FDA-Public Use
  Company Number: GB-JNJFOC-20100400337

PATIENT
  Age: 34 Year
  Sex: Female
  Weight: 96.4 kg

DRUGS (8)
  1. TOPAMAX [Suspect]
     Indication: DRUG USE FOR UNKNOWN INDICATION
     Route: 048
  2. TOPAMAX [Suspect]
     Route: 048
  3. GABAPENTIN [Suspect]
     Indication: NEURALGIA
     Route: 048
  4. DIAZEPAM [Concomitant]
     Indication: ANXIETY
     Route: 048
  5. ESCITALOPRAM [Concomitant]
     Indication: OBSESSIVE-COMPULSIVE DISORDER
     Route: 048
  6. TRAMADOL HCL [Concomitant]
     Indication: PAIN
     Route: 048
  7. WARFARIN SODIUM [Concomitant]
     Indication: THROMBOSIS
     Route: 048
  8. RISPERIDONE [Concomitant]
     Indication: OBSESSIVE-COMPULSIVE DISORDER
     Route: 048

REACTIONS (4)
  - FOLATE DEFICIENCY [None]
  - GLOSSODYNIA [None]
  - INTENTIONAL SELF-INJURY [None]
  - TONGUE ULCERATION [None]
